FAERS Safety Report 8804450 (Version 1)
Quarter: 2012Q4

REPORT INFORMATION
  Report Type: 
  Country: US (occurrence: US)
  Receive Date: 20120923
  Receipt Date: 20120923
  Transmission Date: 20130627
  Serious: No
  Sender: FDA-Public Use
  Company Number: US-TEVA-359997USA

PATIENT
  Sex: Male

DRUGS (2)
  1. NUVIGIL [Suspect]
     Dosage: every am
     Route: 048
     Dates: start: 201209
  2. BLOOD PRESSURE MEDICATION (NOS) [Concomitant]

REACTIONS (2)
  - Dizziness [Not Recovered/Not Resolved]
  - Off label use [Unknown]
